FAERS Safety Report 11591714 (Version 1)
Quarter: 2015Q4

REPORT INFORMATION
  Report Type: Spontaneous
  Country: FI (occurrence: FI)
  Receive Date: 20151005
  Receipt Date: 20151005
  Transmission Date: 20160304
  Serious: No
  Sender: FDA-Public Use
  Company Number: FI-NOVEN PHARMACEUTICALS, INC.-FI2015000667

PATIENT
  Sex: Female

DRUGS (2)
  1. ESTRADIOL/NORETHISTERONE ACETATE [Suspect]
     Active Substance: ESTRADIOL\NORETHINDRONE ACETATE
     Dosage: 1 DF, UNKNOWN,  PHASE I PATCH (ESTRADIOL 50 MCG/24H)
     Route: 062
     Dates: start: 2014
  2. ESTRADIOL/NORETHISTERONE ACETATE [Suspect]
     Active Substance: ESTRADIOL\NORETHINDRONE ACETATE
     Indication: PRODUCT USED FOR UNKNOWN INDICATION
     Dosage: 1 DF, UNKNOWN  PHASE II PATCH (ESTRADIOL 50 MCG/24H NORETHISTERONE 250 MCG/24H)
     Route: 062
     Dates: start: 2014

REACTIONS (2)
  - Menopause [Unknown]
  - Hot flush [Unknown]
